FAERS Safety Report 17790689 (Version 1)
Quarter: 2020Q2

REPORT INFORMATION
  Report Type: Spontaneous
  Country: US (occurrence: US)
  Receive Date: 20200514
  Receipt Date: 20200514
  Transmission Date: 20200714
  Serious: No
  Sender: FDA-Public Use
  Company Number: None

PATIENT
  Age: 67 Year
  Sex: Male

DRUGS (4)
  1. METHOTREXATE 2.5MG TABLETS [Concomitant]
     Active Substance: METHOTREXATE
  2. MELOXICAM 15MG TABLETS [Concomitant]
  3. HUMIRA [Suspect]
     Active Substance: ADALIMUMAB
     Indication: RHEUMATOID ARTHRITIS
     Dosage: ?          OTHER FREQUENCY:ONCE A WEEK;?
     Route: 058
     Dates: start: 20180417, end: 20200421
  4. FOLIC ACID 1 MG  TABLETS [Concomitant]

REACTIONS (2)
  - Prostate cancer [None]
  - Therapy interrupted [None]

NARRATIVE: CASE EVENT DATE: 20200513
